FAERS Safety Report 7728334-3 (Version None)
Quarter: 2011Q3

REPORT INFORMATION
  Report Type: 
  Country: None (occurrence: None)
  Receive Date: 20110905
  Receipt Date: 20110831
  Transmission Date: 20111222
  Serious: No
  Sender: FDA-Public Use
  Company Number: PHHY2011US57538

PATIENT
  Sex: Female

DRUGS (7)
  1. COUMADIN [Concomitant]
  2. ZOLOFT [Concomitant]
  3. GEODON [Concomitant]
  4. BACLOFEN [Concomitant]
  5. GILENYA [Suspect]
     Indication: MULTIPLE SCLEROSIS
     Dosage: 0.5 MG, DAILY
     Route: 048
     Dates: start: 20101230
  6. ENABLEX [Concomitant]
  7. ZOCOR [Concomitant]

REACTIONS (1)
  - JOINT SWELLING [None]
